FAERS Safety Report 21507470 (Version 1)
Quarter: 2022Q4

REPORT INFORMATION
  Report Type: Spontaneous
  Country: US (occurrence: US)
  Receive Date: 20221026
  Receipt Date: 20221026
  Transmission Date: 20230113
  Serious: No
  Sender: FDA-Public Use
  Company Number: US-MYLANLABS-2022M1113348

PATIENT
  Sex: Female
  Weight: 50.8 kg

DRUGS (2)
  1. ESTRADIOL TRANSDERMAL SYSTEM [Suspect]
     Active Substance: ESTRADIOL
     Indication: Hormone replacement therapy
     Dosage: 0.037 MILLIGRAM, QD (ONCE A WEEK)
     Route: 062
  2. PROMETRIUM [Concomitant]
     Active Substance: PROGESTERONE
     Indication: Blood oestrogen decreased
     Dosage: UNK
     Route: 065

REACTIONS (3)
  - Insomnia [Unknown]
  - Hot flush [Unknown]
  - Drug ineffective [Unknown]
